FAERS Safety Report 22842991 (Version 3)
Quarter: 2023Q4

REPORT INFORMATION
  Report Type: Report from Study
  Country: RS (occurrence: RS)
  Receive Date: 20230821
  Receipt Date: 20231030
  Transmission Date: 20240110
  Serious: Yes (Other)
  Sender: FDA-Public Use
  Company Number: RS-AstraZeneca-2023A180643

PATIENT
  Age: 71 Year
  Sex: Male

DRUGS (12)
  1. ENFORTUMAB VEDOTIN [Suspect]
     Active Substance: ENFORTUMAB VEDOTIN
     Indication: Bladder transitional cell carcinoma
     Dosage: UNK UNK, UNKNOWN FREQ.
     Route: 042
     Dates: start: 20230614, end: 20230614
  2. ENFORTUMAB VEDOTIN [Suspect]
     Active Substance: ENFORTUMAB VEDOTIN
     Dosage: UNK UNK, UNKNOWN FREQ.
     Route: 042
     Dates: start: 20230630, end: 20230630
  3. ENFORTUMAB VEDOTIN [Suspect]
     Active Substance: ENFORTUMAB VEDOTIN
     Dosage: UNK UNK, UNKNOWN FREQ.
     Route: 042
     Dates: start: 20230707, end: 20230707
  4. ENFORTUMAB VEDOTIN [Suspect]
     Active Substance: ENFORTUMAB VEDOTIN
     Dosage: UNK UNK, UNKNOWN FREQ.
     Route: 042
     Dates: start: 20230719, end: 20230719
  5. ENFORTUMAB VEDOTIN [Suspect]
     Active Substance: ENFORTUMAB VEDOTIN
     Dosage: UNK UNK, UNKNOWN FREQ.
     Route: 042
     Dates: start: 20230726, end: 20230726
  6. TREMELIMUMAB [Suspect]
     Active Substance: TREMELIMUMAB
     Indication: Bladder transitional cell carcinoma
     Dosage: 75.0MG ONCE/SINGLE ADMINISTRATION
     Route: 042
     Dates: start: 20230607, end: 20230607
  7. DURVALUMAB [Suspect]
     Active Substance: DURVALUMAB
     Indication: Bladder transitional cell carcinoma
     Dosage: 1500.0MG ONCE/SINGLE ADMINISTRATION
     Route: 042
     Dates: start: 20230630, end: 20230630
  8. DURVALUMAB [Suspect]
     Active Substance: DURVALUMAB
     Dosage: 1500.0MG ONCE/SINGLE ADMINISTRATION
     Route: 042
     Dates: start: 20230707, end: 20230707
  9. DURVALUMAB [Suspect]
     Active Substance: DURVALUMAB
     Dosage: 1500.0MG ONCE/SINGLE ADMINISTRATION
     Route: 042
     Dates: start: 20230719, end: 20230719
  10. BISOPROLOL FUMARATE [Concomitant]
     Active Substance: BISOPROLOL FUMARATE
     Indication: Hypertension
     Route: 048
     Dates: start: 2007
  11. HYDROCHLOROTHIAZIDE\RAMIPRIL [Concomitant]
     Active Substance: HYDROCHLOROTHIAZIDE\RAMIPRIL
     Indication: Hypertension
     Dosage: 5 MG, ONCE DAILY (HIDROHLORTIAZID 25 MG)
     Route: 048
     Dates: start: 2007
  12. PROPAFENONE [Concomitant]
     Active Substance: PROPAFENONE
     Indication: Arrhythmia
     Route: 048
     Dates: start: 2014

REACTIONS (1)
  - Rash [Not Recovered/Not Resolved]

NARRATIVE: CASE EVENT DATE: 20230731
